FAERS Safety Report 25321790 (Version 2)
Quarter: 2025Q2

REPORT INFORMATION
  Report Type: Spontaneous
  Country: JP (occurrence: JP)
  Receive Date: 20250516
  Receipt Date: 20250519
  Transmission Date: 20250716
  Serious: Yes (Death, Other)
  Sender: NOVARTIS
  Company Number: JP-002147023-NVSJ2025JP005035

PATIENT

DRUGS (1)
  1. VALSARTAN [Suspect]
     Active Substance: VALSARTAN
     Indication: Foetal exposure during pregnancy
     Route: 064

REACTIONS (6)
  - Death neonatal [Fatal]
  - Hypocalvaria [Unknown]
  - Pulmonary hypoplasia [Unknown]
  - Congenital musculoskeletal disorder of skull [Unknown]
  - Microcephaly [Unknown]
  - Foetal exposure during pregnancy [Unknown]
